FAERS Safety Report 20384009 (Version 1)
Quarter: 2022Q1

REPORT INFORMATION
  Report Type: Spontaneous
  Country: GB (occurrence: GB)
  Receive Date: 20220127
  Receipt Date: 20220127
  Transmission Date: 20220423
  Serious: Yes (Life-Threatening, Disabling, Other)
  Sender: FDA-Public Use
  Company Number: None

PATIENT
  Age: 37 Year
  Sex: Male
  Weight: 75 kg

DRUGS (1)
  1. MIRTAZAPINE [Suspect]
     Active Substance: MIRTAZAPINE
     Indication: Ill-defined disorder
     Dosage: UNK

REACTIONS (9)
  - Adverse drug reaction [Recovered/Resolved]
  - Insomnia [Recovering/Resolving]
  - Tinnitus [Recovering/Resolving]
  - Adverse drug reaction [Recovered/Resolved with Sequelae]
  - Palpitations [Recovering/Resolving]
  - Adverse drug reaction [Recovering/Resolving]
  - Sexual dysfunction [Recovering/Resolving]
  - Adverse drug reaction [Recovering/Resolving]
  - Medication error [Unknown]

NARRATIVE: CASE EVENT DATE: 20201001
